FAERS Safety Report 10168816 (Version 2)
Quarter: 2014Q2

REPORT INFORMATION
  Report Type: Spontaneous
  Country: FR (occurrence: FR)
  Receive Date: 20140513
  Receipt Date: 20140513
  Transmission Date: 20141212
  Serious: Yes (Hospitalization)
  Sender: FDA-Public Use
  Company Number: FR-ACCORD-023451

PATIENT
  Age: 72 Year
  Sex: 0

DRUGS (2)
  1. TACROLIMUS [Suspect]
     Indication: RENAL TRANSPLANT
  2. SIROLIMUS [Suspect]
     Indication: RENAL TRANSPLANT

REACTIONS (4)
  - Respiratory distress [Recovered/Resolved]
  - Confusional state [Recovered/Resolved]
  - Hypertension [Recovered/Resolved]
  - Parotitis [Recovered/Resolved]
